FAERS Safety Report 4314384-6 (Version None)
Quarter: 2004Q1

REPORT INFORMATION
  Report Type: 
  Country: None (occurrence: None)
  Receive Date: 20040308
  Receipt Date: 20040227
  Transmission Date: 20041129
  Serious: Yes (Death, Life-Threatening, Hospitalization, Other)
  Sender: FDA-Public Use
  Company Number: 97-06-0992

PATIENT
  Age: 12 Year
  Sex: Male
  Weight: 68.0396 kg

DRUGS (18)
  1. ALBUTEROL [Suspect]
     Indication: ASTHMA
     Dosage: 20-CONTINIOUS INHALATION
     Route: 045
     Dates: start: 19960901, end: 19970412
  2. PROVENTIL [Suspect]
     Indication: ASTHMA
     Dosage: ORAL AER INH
     Route: 045
     Dates: start: 19970401, end: 19970401
  3. SOLU-MEDROL [Suspect]
     Indication: ASTHMA
     Dates: start: 19970101, end: 19970101
  4. TERBUTALINE SULFATE [Suspect]
     Dates: start: 19970101, end: 19970101
  5. LASIX [Suspect]
  6. FENTANYL [Suspect]
  7. DIAMOX [Suspect]
  8. IBUPROFEN [Suspect]
  9. OXACILLIN [Concomitant]
  10. CEFTAZIDIME [Concomitant]
  11. METHYLPREDNISOLONE [Concomitant]
  12. TERBUTALINE SULFATE [Concomitant]
  13. ATROVENT [Concomitant]
  14. EPINEPHRINE [Concomitant]
  15. DOPAMINE HCL [Concomitant]
  16. DOBUTAMINE [Concomitant]
  17. RANITIDINE [Concomitant]
  18. SUCRALFATE [Concomitant]

REACTIONS (28)
  - ABDOMINAL DISTENSION [None]
  - ACUTE RESPIRATORY DISTRESS SYNDROME [None]
  - BACTERIAL INFECTION [None]
  - BLOOD CALCIUM DECREASED [None]
  - BLOOD MAGNESIUM INCREASED [None]
  - BODY TEMPERATURE INCREASED [None]
  - CARDIOGENIC SHOCK [None]
  - CHILD NEGLECT [None]
  - DISSEMINATED INTRAVASCULAR COAGULATION [None]
  - DUODENAL ULCER [None]
  - EROSIVE DUODENITIS [None]
  - GASTRIC HAEMORRHAGE [None]
  - GASTROINTESTINAL NECROSIS [None]
  - HYPOTENSION [None]
  - ILEUS PARALYTIC [None]
  - LACTIC ACIDOSIS [None]
  - LUNG INFILTRATION [None]
  - MEDICATION ERROR [None]
  - MULTI-ORGAN FAILURE [None]
  - NECROSIS ISCHAEMIC [None]
  - OVERDOSE [None]
  - PHARMACEUTICAL PRODUCT COMPLAINT [None]
  - RENAL FAILURE [None]
  - RESPIRATORY FAILURE [None]
  - SEPSIS [None]
  - SEPTIC SHOCK [None]
  - STATUS ASTHMATICUS [None]
  - UPPER GASTROINTESTINAL HAEMORRHAGE [None]
